FAERS Safety Report 20853724 (Version 28)
Quarter: 2024Q4

REPORT INFORMATION
  Report Type: Report from Study
  Country: US (occurrence: US)
  Receive Date: 20220520
  Receipt Date: 20241223
  Transmission Date: 20250115
  Serious: Yes (Other)
  Sender: TAKEDA
  Company Number: US-TAKEDA-2022TUS008208

PATIENT
  Sex: Male
  Weight: 54 kg

DRUGS (43)
  1. HUMAN IMMUNOGLOBULIN G [Suspect]
     Active Substance: HUMAN IMMUNOGLOBULIN G
     Indication: Congenital hypogammaglobulinaemia
     Dosage: 60 GRAM
  2. HUMAN IMMUNOGLOBULIN G [Suspect]
     Active Substance: HUMAN IMMUNOGLOBULIN G
     Dosage: 60 GRAM
  3. HUMAN IMMUNOGLOBULIN G [Suspect]
     Active Substance: HUMAN IMMUNOGLOBULIN G
     Dosage: 50 GRAM
  4. HUMAN IMMUNOGLOBULIN G [Suspect]
     Active Substance: HUMAN IMMUNOGLOBULIN G
     Dosage: 60 GRAM
  5. HUMAN IMMUNOGLOBULIN G [Suspect]
     Active Substance: HUMAN IMMUNOGLOBULIN G
     Dosage: 70 GRAM
  6. DIPHENHYDRAMINE [Suspect]
     Active Substance: DIPHENHYDRAMINE
     Indication: Product used for unknown indication
     Dosage: UNK
  7. ITRACONAZOLE [Suspect]
     Active Substance: ITRACONAZOLE
     Indication: Product used for unknown indication
     Dosage: UNK
  8. ACETAMINOPHEN [Concomitant]
     Active Substance: ACETAMINOPHEN
     Dosage: UNK
  9. DEXTROSE [Concomitant]
     Active Substance: DEXTROSE MONOHYDRATE
     Dosage: UNK
  10. DIPHENHYDRAMINE HYDROCHLORIDE [Concomitant]
     Active Substance: DIPHENHYDRAMINE HYDROCHLORIDE
     Dosage: UNK
  11. HEPARIN [Concomitant]
     Active Substance: HEPARIN SODIUM
     Dosage: UNK
  12. LIDOCAINE [Concomitant]
     Active Substance: LIDOCAINE
     Dosage: UNK
  13. SODIUM CHLORIDE [Concomitant]
     Active Substance: SODIUM CHLORIDE
     Dosage: UNK
  14. EPINEPHRINE [Concomitant]
     Active Substance: EPINEPHRINE
     Dosage: UNK
  15. ADVIL [Concomitant]
     Active Substance: IBUPROFEN
     Dosage: UNK
  16. PRAVASTATIN [Concomitant]
     Active Substance: PRAVASTATIN
     Dosage: UNK
  17. MARAVIROC [Concomitant]
     Active Substance: MARAVIROC
     Dosage: UNK
  18. GARLIC [Concomitant]
     Active Substance: GARLIC
     Dosage: UNK
  19. CROMOLYN SODIUM [Concomitant]
     Active Substance: CROMOLYN SODIUM
     Dosage: UNK
  20. MAGNESIUM CHLORIDE [Concomitant]
     Active Substance: MAGNESIUM CHLORIDE
     Dosage: UNK
  21. PEPCID [Concomitant]
     Active Substance: FAMOTIDINE
     Dosage: UNK
  22. COLLAGENASE SANTYL [Concomitant]
     Active Substance: COLLAGENASE CLOSTRIDIUM HISTOLYTICUM
     Dosage: UNK
  23. SODIUM CHLORIDE [Concomitant]
     Active Substance: SODIUM CHLORIDE
     Dosage: UNK
  24. Allergy relief [Concomitant]
     Dosage: UNK
  25. CHROMIUM PICOLINATE [Concomitant]
     Active Substance: CHROMIUM PICOLINATE
     Dosage: UNK
  26. ZYRTEC [Concomitant]
     Active Substance: CETIRIZINE HYDROCHLORIDE
     Dosage: UNK
  27. Nac [Concomitant]
     Dosage: UNK
  28. ZINC [Concomitant]
     Active Substance: ZINC
     Dosage: UNK
  29. QUERCETIN DIHYDRATE [Concomitant]
     Active Substance: QUERCETIN DIHYDRATE
     Dosage: UNK
  30. LITHIUM OROTATE [Concomitant]
     Active Substance: LITHIUM OROTATE
     Dosage: UNK
  31. DOXYCYCLINE HYCLATE [Concomitant]
     Active Substance: DOXYCYCLINE HYCLATE
     Dosage: UNK
  32. VITAMIN B COMPLEX [Concomitant]
     Active Substance: CYANOCOBALAMIN\DEXPANTHENOL\NIACINAMIDE\PYRIDOXINE HYDROCHLORIDE\RIBOFLAVIN 5^-PHOSPHATE SODIUM\THIA
     Dosage: UNK
  33. ALBUTEROL SULFATE [Concomitant]
     Active Substance: ALBUTEROL SULFATE
     Dosage: UNK
  34. IVERMECTIN [Concomitant]
     Active Substance: IVERMECTIN
     Dosage: UNK
  35. Lmx [Concomitant]
     Dosage: UNK
  36. RIFAMPIN [Concomitant]
     Active Substance: RIFAMPIN
     Dosage: UNK
  37. AZITHROMYCIN [Concomitant]
     Active Substance: AZITHROMYCIN
     Dosage: UNK
  38. VITAMIN C [Concomitant]
     Active Substance: ASCORBIC ACID
     Dosage: UNK
  39. MELATONIN [Concomitant]
     Active Substance: MELATONIN
     Dosage: UNK
  40. L THEANINE [Concomitant]
     Dosage: UNK
  41. MAGNESIUM [Concomitant]
     Active Substance: MAGNESIUM
     Dosage: UNK
  42. PRAVASTATIN SODIUM [Concomitant]
     Active Substance: PRAVASTATIN SODIUM
     Dosage: UNK
  43. ADVIL DUAL ACTION WITH ACETAMINOPHEN [Concomitant]
     Active Substance: ACETAMINOPHEN\IBUPROFEN
     Dosage: UNK

REACTIONS (42)
  - Lyme disease [Unknown]
  - Pneumonia [Unknown]
  - Cellulitis [Unknown]
  - Sinus congestion [Unknown]
  - Head discomfort [Unknown]
  - Viral infection [Unknown]
  - Paranasal sinus discomfort [Unknown]
  - Scratch [Unknown]
  - Fungal infection [Unknown]
  - Illness [Unknown]
  - Vitreous floaters [Unknown]
  - Inflammation [Unknown]
  - Stress [Unknown]
  - Ocular hyperaemia [Unknown]
  - COVID-19 [Unknown]
  - Crepitations [Unknown]
  - Obsessive-compulsive disorder [Unknown]
  - Respiratory tract infection [Unknown]
  - Mycotic allergy [Unknown]
  - Ligament sprain [Unknown]
  - Bowel movement irregularity [Recovered/Resolved]
  - Pharyngitis streptococcal [Unknown]
  - Infusion related reaction [Unknown]
  - Dermatitis contact [Unknown]
  - Somnolence [Unknown]
  - Musculoskeletal chest pain [Recovered/Resolved]
  - Pain [Unknown]
  - Eye swelling [Unknown]
  - Infusion site extravasation [Unknown]
  - Asthenia [Unknown]
  - Oropharyngeal pain [Unknown]
  - Anxiety [Recovered/Resolved]
  - Malaise [Unknown]
  - Dyspnoea [Unknown]
  - Chest pain [Recovered/Resolved]
  - Chest discomfort [Recovered/Resolved]
  - Vomiting [Recovered/Resolved]
  - Headache [Recovered/Resolved]
  - Fatigue [Unknown]
  - Nausea [Recovered/Resolved]
  - Postural orthostatic tachycardia syndrome [Unknown]
  - Product dose omission issue [Unknown]
